FAERS Safety Report 17235499 (Version 1)
Quarter: 2020Q1

REPORT INFORMATION
  Report Type: Spontaneous
  Country: US (occurrence: US)
  Receive Date: 20200106
  Receipt Date: 20200106
  Transmission Date: 20200409
  Serious: No
  Sender: FDA-Public Use
  Company Number: US-AMGEN-USASP2019217869

PATIENT
  Age: 30 Year
  Sex: Female

DRUGS (4)
  1. OZONE [Concomitant]
     Active Substance: OZONE
     Indication: LYME DISEASE
     Dosage: UNK
  2. HYDROGEN PEROXIDE. [Concomitant]
     Active Substance: HYDROGEN PEROXIDE
     Indication: LYME DISEASE
     Dosage: UNK
  3. NEUPOGEN [Suspect]
     Active Substance: FILGRASTIM
     Indication: NEUTROPENIA
     Dosage: 300 MICROGRAM
     Route: 065
  4. SILVER COLLOIDAL [Concomitant]
     Active Substance: SILVER
     Indication: LYME DISEASE
     Dosage: TOTAL DOSE OF PARENTERAL SILVER AMOUNTED TO 883 MG

REACTIONS (6)
  - Off label use [Unknown]
  - Poikilocytosis [Unknown]
  - Anisochromia [Unknown]
  - Copper deficiency [Unknown]
  - Marrow hyperplasia [Unknown]
  - Serum ferritin increased [Unknown]
